FAERS Safety Report 7427056-6 (Version None)
Quarter: 2011Q2

REPORT INFORMATION
  Report Type: 
  Country: None (occurrence: None)
  Receive Date: 20110420
  Receipt Date: 20110412
  Transmission Date: 20111010
  Serious: Yes (Other)
  Sender: FDA-Public Use
  Company Number: PHHY2010AU56994

PATIENT
  Sex: Female

DRUGS (2)
  1. GLEEVEC [Suspect]
     Indication: CHRONIC MYELOID LEUKAEMIA
     Dosage: 400 MG, UNK
     Route: 048
  2. LIGNOCAINE HYDROCHLORIDE AND ADRENALINE [Suspect]
     Indication: DENTAL COSMETIC PROCEDURE

REACTIONS (6)
  - BLINDNESS [None]
  - VISION BLURRED [None]
  - FATIGUE [None]
  - HEADACHE [None]
  - VISUAL IMPAIRMENT [None]
  - MIGRAINE [None]
